FAERS Safety Report 6807017-8 (Version None)
Quarter: 2010Q2

REPORT INFORMATION
  Report Type: 
  Country: None (occurrence: None)
  Receive Date: 20100628
  Receipt Date: 20100628
  Transmission Date: 20101027
  Serious: No
  Sender: FDA-Public Use
  Company Number: None

PATIENT
  Sex: Female
  Weight: 75 kg

DRUGS (1)
  1. METOPROLOL SUCCINATE EXTENDED RELEASE [Suspect]
     Indication: MITRAL VALVE PROLAPSE
     Dosage: 75MG QD ORAL APPROX. 5/20/10
     Route: 048
     Dates: start: 20100520

REACTIONS (3)
  - DRUG INEFFECTIVE [None]
  - HEART RATE IRREGULAR [None]
  - PRODUCT SUBSTITUTION ISSUE [None]
